FAERS Safety Report 22288175 (Version 1)
Quarter: 2023Q2

REPORT INFORMATION
  Report Type: Report from Study
  Country: CR (occurrence: CR)
  Receive Date: 20230505
  Receipt Date: 20230505
  Transmission Date: 20230722
  Serious: Yes (Other)
  Sender: FDA-Public Use
  Company Number: CR-BAYER-2023A058574

PATIENT
  Age: 41 Year
  Sex: Female

DRUGS (2)
  1. DIENOGEST [Suspect]
     Active Substance: DIENOGEST
     Indication: Heavy menstrual bleeding
     Dosage: UNK
     Route: 048
     Dates: end: 202303
  2. DIENOGEST\ESTRADIOL VALERATE [Suspect]
     Active Substance: DIENOGEST\ESTRADIOL VALERATE
     Indication: Heavy menstrual bleeding
     Dosage: UNK
     Route: 048
     Dates: start: 202303

REACTIONS (2)
  - Neoplasm [Recovered/Resolved]
  - Off label use [None]
